FAERS Safety Report 9731225 (Version 2)
Quarter: 2013Q4

REPORT INFORMATION
  Report Type: Report from Study
  Country: VE (occurrence: VE)
  Receive Date: 20131203
  Receipt Date: 20131203
  Transmission Date: 20140711
  Serious: Yes (Other)
  Sender: FDA-Public Use
  Company Number: VE-ABBVIE-13P-178-1036867-00

PATIENT
  Age: 48 Year
  Sex: Male
  Weight: 80 kg

DRUGS (2)
  1. HUMIRA [Suspect]
     Indication: PSORIASIS
     Route: 058
     Dates: start: 201206, end: 201206
  2. ATENOLOL [Concomitant]
     Indication: HYPERTENSION
     Dosage: ROUTE: VO

REACTIONS (4)
  - Prostatitis [Recovering/Resolving]
  - Anuria [Recovering/Resolving]
  - Cough [Recovered/Resolved]
  - Psoriasis [Not Recovered/Not Resolved]
